FAERS Safety Report 6195497-3 (Version None)
Quarter: 2009Q2

REPORT INFORMATION
  Report Type: 
  Country: None (occurrence: None)
  Receive Date: 20090519
  Receipt Date: 20090514
  Transmission Date: 20091009
  Serious: Yes (Hospitalization)
  Sender: FDA-Public Use
  Company Number: JP-EISAI INC.-E2020-04599-SPO-JP

PATIENT
  Age: 78 Year
  Sex: Male
  Weight: 50.9 kg

DRUGS (3)
  1. ARICEPT [Suspect]
     Route: 048
     Dates: start: 20090407, end: 20090407
  2. ASPIRIN [Concomitant]
     Route: 048
     Dates: start: 20080604
  3. PRAVASTAN [Concomitant]
     Route: 048
     Dates: start: 20070509

REACTIONS (1)
  - INTESTINAL OBSTRUCTION [None]
